FAERS Safety Report 24979809 (Version 1)
Quarter: 2025Q1

REPORT INFORMATION
  Report Type: Spontaneous
  Country: PT (occurrence: PT)
  Receive Date: 20250218
  Receipt Date: 20250218
  Transmission Date: 20250408
  Serious: Yes (Other)
  Sender: TEVA
  Company Number: None

PATIENT
  Age: 40 Year
  Sex: Male
  Weight: 92 kg

DRUGS (1)
  1. AMOXICILLIN\CLAVULANIC ACID [Suspect]
     Active Substance: AMOXICILLIN\CLAVULANIC ACID
     Indication: Tooth infection
     Dosage: DOSAGE: 1 ARB^U 1 TABLET 12/12 H, AMOXICILLIN + CLAVULANIC ACID
     Route: 048
     Dates: start: 20250106, end: 20250115

REACTIONS (2)
  - Rash pruritic [Recovered/Resolved]
  - Periorbital oedema [Recovered/Resolved]

NARRATIVE: CASE EVENT DATE: 20250115
